FAERS Safety Report 9159479 (Version 1)
Quarter: 2013Q1

REPORT INFORMATION
  Report Type: Spontaneous
  Country: US (occurrence: None)
  Receive Date: 20130214
  Receipt Date: 20130214
  Transmission Date: 20140127
  Serious: Yes (Other)
  Sender: FDA-Public Use
  Company Number: 2013SA009451

PATIENT
  Sex: Female

DRUGS (1)
  1. CORTIZONE [Suspect]
     Indication: RASH
     Dates: start: 20130131

REACTIONS (2)
  - Scab [None]
  - Chemical burn of skin [None]
